FAERS Safety Report 10396321 (Version 1)
Quarter: 2014Q3

REPORT INFORMATION
  Report Type: Spontaneous
  Country: US (occurrence: US)
  Receive Date: 20140820
  Receipt Date: 20140820
  Transmission Date: 20150326
  Serious: Yes (Hospitalization, Other)
  Sender: FDA-Public Use
  Company Number: US-009507513-1408USA010210

PATIENT
  Age: 79 Year
  Sex: Male

DRUGS (6)
  1. JANUMET [Suspect]
     Active Substance: METFORMIN HYDROCHLORIDE\SITAGLIPTIN PHOSPHATE
     Indication: DIABETES MELLITUS
     Dosage: PER DAY
     Route: 048
     Dates: end: 201011
  2. ADVAIR HFA [Suspect]
     Active Substance: FLUTICASONE PROPIONATE\SALMETEROL XINAFOATE
     Indication: CHRONIC OBSTRUCTIVE PULMONARY DISEASE
     Dosage: 1 PUFF, TWICE PER DAY, INHALED
     Route: 055
     Dates: start: 2006
  3. ALBUTEROL SULFATE. [Concomitant]
     Active Substance: ALBUTEROL SULFATE
  4. OXYGEN. [Concomitant]
     Active Substance: OXYGEN
  5. PROSCAR [Concomitant]
     Active Substance: FINASTERIDE
     Route: 048
  6. SPIRIVA [Suspect]
     Active Substance: TIOTROPIUM BROMIDE MONOHYDRATE
     Dosage: UNK
     Dates: end: 2012

REACTIONS (8)
  - Pneumonia [Recovered/Resolved with Sequelae]
  - Clostridium difficile colitis [Recovered/Resolved with Sequelae]
  - Intestinal resection [Recovered/Resolved with Sequelae]
  - Lactic acidosis [Recovered/Resolved with Sequelae]
  - Lung infection [Recovered/Resolved with Sequelae]
  - Gastrointestinal disorder [Recovered/Resolved with Sequelae]
  - Gastrointestinal surgery [Recovered/Resolved with Sequelae]
  - Colostomy [Recovered/Resolved with Sequelae]

NARRATIVE: CASE EVENT DATE: 2008
